FAERS Safety Report 6025389-1 (Version None)
Quarter: 2008Q4

REPORT INFORMATION
  Report Type: 
  Country: None (occurrence: None)
  Receive Date: 20081224
  Receipt Date: 20081216
  Transmission Date: 20090506
  Serious: Yes (Disabling)
  Sender: FDA-Public Use
  Company Number: APP200801182

PATIENT
  Age: 38 Year
  Sex: Female

DRUGS (12)
  1. BUPIVACAINE HYDROCHLORIDE AND EPINEPHRINE [Suspect]
     Indication: MUSCULOSKELETAL PAIN
     Dosage: 270 ML, 0.25% CONTINUOUS VIA PAIN PUMP, INTRA-ARTICULAR,   1:200,000; 50 ML, THEN 30 ML, LOCAL INFI
     Route: 014
     Dates: start: 20051223, end: 20051223
  2. BUPIVACAINE HYDROCHLORIDE AND EPINEPHRINE [Suspect]
     Indication: MUSCULOSKELETAL PAIN
     Dosage: 270 ML, 0.25% CONTINUOUS VIA PAIN PUMP, INTRA-ARTICULAR,   1:200,000; 50 ML, THEN 30 ML, LOCAL INFI
     Route: 014
     Dates: start: 20041018
  3. BUPIVACAINE HYDROCHLORIDE AND EPINEPHRINE [Suspect]
     Indication: MUSCULOSKELETAL PAIN
     Dosage: 270 ML, 0.25% CONTINUOUS VIA PAIN PUMP, INTRA-ARTICULAR,   1:200,000; 50 ML, THEN 30 ML, LOCAL INFI
     Route: 014
     Dates: start: 20041018
  4. I-FLOW ON-Q PAINBUSTER PAIN PUMP [Suspect]
     Indication: MUSCULOSKELETAL PAIN
     Dates: start: 20051223, end: 20051223
  5. I-FLOW ON-Q PAINBUSTER PAIN PUMP [Suspect]
     Indication: MUSCULOSKELETAL PAIN
     Dates: start: 20041018
  6. I-FLOW ON-Q PAINBUSTER PAIN PUMP [Suspect]
     Indication: MUSCULOSKELETAL PAIN
     Dates: start: 20051223
  7. BUPIVACAINE [Suspect]
     Dosage: 100 ML, 2 ML/HR
     Dates: start: 20051223
  8. MARCAINE [Suspect]
     Indication: MUSCULOSKELETAL PAIN
     Dosage: 250 ML, 2 ML/HR WITH 1 ML BOLUS EVERY 45 MIN, LOCAL INFILTRATION
     Dates: start: 20060406
  9. MARCAINE [Suspect]
     Indication: MUSCULOSKELETAL PAIN
     Dosage: 250 ML, 2 ML/HR WITH 1 ML BOLUS EVERY 45 MIN, LOCAL INFILTRATION
     Dates: start: 20060406
  10. THERMAL PROBE [Suspect]
  11. PAIN PUMP [Suspect]
     Indication: MUSCULOSKELETAL PAIN
  12. LACTATED RINGERS (FLEBOBAG RING LACT) [Concomitant]

REACTIONS (10)
  - ARTHROPATHY [None]
  - CHONDROLYSIS [None]
  - FALL [None]
  - JOINT CREPITATION [None]
  - JOINT RANGE OF MOTION DECREASED [None]
  - MUSCLE ATROPHY [None]
  - MUSCULOSKELETAL PAIN [None]
  - MUSCULOSKELETAL STIFFNESS [None]
  - NO THERAPEUTIC RESPONSE [None]
  - SHOULDER ARTHROPLASTY [None]
